FAERS Safety Report 10263785 (Version 1)
Quarter: 2014Q2

REPORT INFORMATION
  Report Type: Not Available
  Country: US (occurrence: US)
  Receive Date: 20140627
  Receipt Date: 20140627
  Transmission Date: 20141212
  Serious: Yes (Other)
  Sender: FDA-Public Use
  Company Number: US-LUPIN PHARMACEUTICALS INC.-E2B_00002201

PATIENT
  Age: 68 Year
  Sex: Male
  Weight: 104.87 kg

DRUGS (12)
  1. LEVOFLOXACIN TABLETS 500 MG [Suspect]
     Indication: STAPHYLOCOCCAL INFECTION
     Dates: start: 201312, end: 20140604
  2. METFORMIN [Concomitant]
     Indication: DIABETES MELLITUS
  3. GLYBURIDE [Concomitant]
     Indication: DIABETES MELLITUS
  4. LASIX [Concomitant]
     Indication: PRODUCT USED FOR UNKNOWN INDICATION
  5. POTASSIUM [Concomitant]
     Indication: ELECTROLYTE SUBSTITUTION THERAPY
  6. LISINOPRIL [Concomitant]
     Indication: HYPERTENSION
  7. METOPROLOL [Concomitant]
     Indication: HYPERTENSION
  8. AMLODIPINE [Concomitant]
     Indication: HYPERTENSION
  9. CLONAZEPAM [Concomitant]
     Indication: SLEEP DISORDER
     Dates: start: 201404
  10. AMBIEN [Concomitant]
     Indication: SLEEP DISORDER
     Dates: start: 201404
  11. DUCOLAX [Concomitant]
     Indication: CONSTIPATION
  12. SIMVASTATIN [Concomitant]
     Indication: BLOOD CHOLESTEROL INCREASED

REACTIONS (17)
  - Blood glucose increased [Recovered/Resolved]
  - Muscle spasms [Recovering/Resolving]
  - Contusion [Not Recovered/Not Resolved]
  - Thirst [Not Recovered/Not Resolved]
  - Skin discolouration [Not Recovered/Not Resolved]
  - Oedema peripheral [Recovered/Resolved]
  - Neuropathy peripheral [Not Recovered/Not Resolved]
  - Abdominal pain [Recovering/Resolving]
  - Gait disturbance [Not Recovered/Not Resolved]
  - Dizziness [Not Recovered/Not Resolved]
  - Visual impairment [Not Recovered/Not Resolved]
  - Constipation [Not Recovered/Not Resolved]
  - Dyspnoea [Not Recovered/Not Resolved]
  - Arthralgia [Not Recovered/Not Resolved]
  - Pruritus [Not Recovered/Not Resolved]
  - Back pain [Not Recovered/Not Resolved]
  - Nightmare [Not Recovered/Not Resolved]
